FAERS Safety Report 19179925 (Version 1)
Quarter: 2021Q2

REPORT INFORMATION
  Report Type: Spontaneous
  Country: US (occurrence: US)
  Receive Date: 20210426
  Receipt Date: 20210426
  Transmission Date: 20210717
  Serious: No
  Sender: FDA-Public Use
  Company Number: None

PATIENT
  Age: 67 Year
  Sex: Female
  Weight: 104.8 kg

DRUGS (6)
  1. ROCURONIUM [Concomitant]
     Active Substance: ROCURONIUM BROMIDE
     Dates: start: 20210421, end: 20210421
  2. PROPOFOL. [Concomitant]
     Active Substance: PROPOFOL
     Dates: start: 20210421, end: 20210421
  3. MIDAZOLAM. [Concomitant]
     Active Substance: MIDAZOLAM
     Dates: start: 20210421, end: 20210421
  4. FENTANYL. [Concomitant]
     Active Substance: FENTANYL
     Dates: start: 20210421, end: 20210421
  5. LIDOCAINE HYDROCHLORIDE AND EPINEPHRINE [Suspect]
     Active Substance: EPINEPHRINE\LIDOCAINE HYDROCHLORIDE
     Dosage: ?          OTHER FREQUENCY:ONE TIME;?
     Route: 003
     Dates: start: 20210421, end: 20210421
  6. LIDOCAINE 2% [Concomitant]
     Active Substance: LIDOCAINE
     Dates: start: 20210421, end: 20210421

REACTIONS (1)
  - Blood pressure increased [None]

NARRATIVE: CASE EVENT DATE: 20210421
